FAERS Safety Report 14972549 (Version 1)
Quarter: 2018Q2

REPORT INFORMATION
  Report Type: Spontaneous
  Country: US (occurrence: US)
  Receive Date: 20180605
  Receipt Date: 20180605
  Transmission Date: 20180711
  Serious: Yes (Death)
  Sender: FDA-Public Use
  Company Number: US-CIPLA LTD.-2018US18898

PATIENT

DRUGS (5)
  1. GABAPENTIN. [Suspect]
     Active Substance: GABAPENTIN
     Indication: COMPULSIVE HOARDING
     Dosage: 300 MG, BID
     Route: 065
  2. BUPROPION. [Suspect]
     Active Substance: BUPROPION
     Indication: COMPULSIVE HOARDING
     Dosage: 75 MG, EVERY DAY
     Route: 065
  3. ARIPIPRAZOLE. [Suspect]
     Active Substance: ARIPIPRAZOLE
     Indication: COMPULSIVE HOARDING
     Dosage: 5 MG, EVERY DAY
     Route: 065
  4. LITHIUM. [Suspect]
     Active Substance: LITHIUM
     Indication: COMPULSIVE HOARDING
     Dosage: 300 MG, BID
     Route: 065
  5. MEMANTINE. [Suspect]
     Active Substance: MEMANTINE
     Indication: COMPULSIVE HOARDING
     Dosage: 10 MG, BID
     Route: 065

REACTIONS (2)
  - Therapy non-responder [Unknown]
  - Death [Fatal]
